FAERS Safety Report 8014695-7 (Version None)
Quarter: 2011Q4

REPORT INFORMATION
  Report Type: 
  Country: None (occurrence: None)
  Receive Date: 20111229
  Receipt Date: 20111122
  Transmission Date: 20120403
  Serious: Yes (Other)
  Sender: FDA-Public Use
  Company Number: PHFR2011GB05813

PATIENT
  Sex: Female

DRUGS (4)
  1. ARIPIPRAZOLE [Concomitant]
     Indication: BIPOLAR DISORDER
     Dosage: 5 MG, UNK
     Dates: start: 20110701
  2. CLOZARIL [Suspect]
     Indication: SCHIZOPHRENIA
     Dosage: UNK UKN, UNK
     Dates: start: 20061018
  3. CLOZARIL [Suspect]
     Dosage: 40 MG, UNK
     Route: 048
  4. VALPROATE SODIUM [Concomitant]
     Indication: BIPOLAR DISORDER
     Dosage: 14 MG, UNK
     Route: 048

REACTIONS (8)
  - APTYALISM [None]
  - METABOLIC SYNDROME [None]
  - BLOOD PRESSURE DECREASED [None]
  - DIABETES MELLITUS [None]
  - FLUID INTAKE REDUCED [None]
  - CONFUSIONAL STATE [None]
  - GASTROOESOPHAGEAL REFLUX DISEASE [None]
  - MALAISE [None]
